FAERS Safety Report 8457651-7 (Version None)
Quarter: 2012Q2

REPORT INFORMATION
  Report Type: 
  Country: None (occurrence: None)
  Receive Date: 20120622
  Receipt Date: 20120619
  Transmission Date: 20120825
  Serious: No
  Sender: FDA-Public Use
  Company Number: US-PFIZER INC-2012103390

PATIENT
  Sex: Female

DRUGS (6)
  1. EFFEXOR XR [Suspect]
     Dosage: 75 MG, 1X/DAY, (1 TABLET (75 MG) EVERY DAY)
     Route: 048
  2. LEVOTHYROXINE [Concomitant]
     Dosage: 125 UG, 1X/DAY,  (1 CAPSULE (125 MCG) EVERY DAY)
     Route: 048
  3. EFFEXOR XR [Suspect]
     Dosage: 37.5 MG, 1X/DAY (1 CAPSULE (37.5MG) EVERY DAY WITH FOOD)
     Route: 048
  4. PRILOSEC [Concomitant]
     Dosage: 20 MG, 1X/DAY,  (1 CAPSULE (20 MG) EVERY DAY BEFORE A MEAL)
     Route: 048
  5. GEODON [Suspect]
     Dosage: 80 MG, 2X/DAY, (1 CAPSULE (80 MG) 2 TIMES EVERY DAY WITH FOOD)
     Route: 048
  6. LAMICTAL [Concomitant]
     Dosage: 25 MG, 1X/DAY, (1 TABLET (25 MG) EVERY DAY)
     Route: 048

REACTIONS (1)
  - MALAISE [None]
